FAERS Safety Report 13322567 (Version 1)
Quarter: 2017Q1

REPORT INFORMATION
  Report Type: Spontaneous
  Country: US (occurrence: US)
  Receive Date: 20170310
  Receipt Date: 20170310
  Transmission Date: 20170428
  Serious: Yes (Other)
  Sender: FDA-Public Use
  Company Number: US-ELI_LILLY_AND_COMPANY-US201607012611

PATIENT

DRUGS (2)
  1. CYMBALTA [Suspect]
     Active Substance: DULOXETINE HYDROCHLORIDE
     Indication: DEPRESSION
     Dosage: UNK, UNKNOWN
     Route: 048
  2. CYMBALTA [Suspect]
     Active Substance: DULOXETINE HYDROCHLORIDE
     Indication: FIBROMYALGIA
     Dosage: 30 MG, QD
     Route: 048
     Dates: start: 201502, end: 20150315

REACTIONS (18)
  - Paraesthesia [Unknown]
  - Lethargy [Unknown]
  - Mental disorder [Unknown]
  - Fibromyalgia [Unknown]
  - Anxiety [Unknown]
  - Dysphoria [Unknown]
  - Dizziness [Unknown]
  - Affect lability [Unknown]
  - Hot flush [Unknown]
  - Drug withdrawal syndrome [Unknown]
  - Suicidal ideation [Unknown]
  - Hyperacusis [Unknown]
  - Tinnitus [Unknown]
  - Photophobia [Unknown]
  - Vertigo [Unknown]
  - Fatigue [Unknown]
  - Irritability [Unknown]
  - Insomnia [Unknown]
